FAERS Safety Report 7557165-2 (Version None)
Quarter: 2011Q2

REPORT INFORMATION
  Report Type: 
  Country: None (occurrence: None)
  Receive Date: 20110620
  Receipt Date: 20110607
  Transmission Date: 20111010
  Serious: Yes (Hospitalization)
  Sender: FDA-Public Use
  Company Number: FR-SANOFI-AVENTIS-2011SA036923

PATIENT
  Age: 83 Year
  Sex: Female

DRUGS (10)
  1. SOLU-MEDROL [Suspect]
     Route: 042
     Dates: start: 20110525, end: 20110526
  2. IMOVANE [Concomitant]
     Route: 065
     Dates: end: 20110526
  3. OMEPRAZOLE [Concomitant]
     Route: 065
  4. ACETAMINOPHEN [Concomitant]
     Route: 065
     Dates: end: 20110526
  5. PAROXETINE HCL [Concomitant]
     Route: 065
     Dates: end: 20110526
  6. LASIX [Suspect]
     Route: 065
  7. AUGMENTIN '125' [Suspect]
     Route: 065
     Dates: start: 20110523, end: 20110526
  8. LEVOTHYROXINE SODIUM [Concomitant]
     Route: 065
  9. ESOMEPRAZOLE MAGNESIUM [Concomitant]
     Route: 065
     Dates: end: 20110526
  10. GLUCOPHAGE [Concomitant]
     Route: 065
     Dates: end: 20110526

REACTIONS (1)
  - CYTOLYTIC HEPATITIS [None]
